FAERS Safety Report 25352386 (Version 2)
Quarter: 2025Q2

REPORT INFORMATION
  Report Type: Report from Study
  Country: CN (occurrence: CN)
  Receive Date: 20250523
  Receipt Date: 20250605
  Transmission Date: 20250717
  Serious: Yes (Hospitalization, Other)
  Sender: ROCHE
  Company Number: CN-ROCHE-10000013679

PATIENT
  Age: 60 Year
  Sex: Female
  Weight: 46 kg

DRUGS (38)
  1. POLIVY [Suspect]
     Active Substance: POLATUZUMAB VEDOTIN-PIIQ
     Indication: Diffuse large B-cell lymphoma
     Route: 042
     Dates: start: 20240517, end: 20240517
  2. POLIVY [Suspect]
     Active Substance: POLATUZUMAB VEDOTIN-PIIQ
     Route: 042
     Dates: start: 20240608, end: 20240608
  3. MABTHERA [Suspect]
     Active Substance: RITUXIMAB
     Indication: Diffuse large B-cell lymphoma
     Route: 042
     Dates: start: 20240517, end: 20240517
  4. MABTHERA [Suspect]
     Active Substance: RITUXIMAB
     Route: 042
     Dates: start: 20240608, end: 20240608
  5. CYCLOPHOSPHAMIDE [Suspect]
     Active Substance: CYCLOPHOSPHAMIDE
     Indication: Diffuse large B-cell lymphoma
     Route: 042
     Dates: start: 20240609, end: 20240609
  6. CYCLOPHOSPHAMIDE [Suspect]
     Active Substance: CYCLOPHOSPHAMIDE
     Route: 042
     Dates: start: 20240518
  7. DEXAMETHASONE [Suspect]
     Active Substance: DEXAMETHASONE
     Indication: Diffuse large B-cell lymphoma
     Route: 042
     Dates: start: 20240518, end: 20240519
  8. DEXAMETHASONE [Suspect]
     Active Substance: DEXAMETHASONE
     Route: 042
     Dates: start: 20240609, end: 20240610
  9. DOXORUBICIN [Suspect]
     Active Substance: DOXORUBICIN
     Indication: Diffuse large B-cell lymphoma
     Route: 042
     Dates: start: 20240518, end: 20240518
  10. pantoprazole sodium injection [Concomitant]
     Route: 042
     Dates: start: 20240517, end: 20240519
  11. DEXAMETHASONE [Concomitant]
     Active Substance: DEXAMETHASONE
     Route: 042
     Dates: start: 20240517, end: 20240517
  12. ACETAMINOPHEN [Concomitant]
     Active Substance: ACETAMINOPHEN
     Route: 048
     Dates: start: 20240517, end: 20240517
  13. Mesa sodium injection [Concomitant]
     Route: 042
     Dates: start: 20240518, end: 20240518
  14. Mesa sodium injection [Concomitant]
     Route: 042
     Dates: start: 20240609, end: 20240609
  15. PEGYLATED RECOMBINANT HUMAN GRANULOCYTE COLONY STIMULATING FACTOR [Concomitant]
     Route: 058
     Dates: start: 20240518, end: 20240518
  16. PEGYLATED RECOMBINANT HUMAN GRANULOCYTE COLONY STIMULATING FACTOR [Concomitant]
     Dates: start: 202405, end: 202405
  17. estazolam tablet [Concomitant]
     Route: 048
     Dates: start: 20240607, end: 20240610
  18. DEXRAZOXANE [Concomitant]
     Active Substance: DEXRAZOXANE
     Route: 042
     Dates: start: 20240609, end: 20240609
  19. DEXRAZOXANE [Concomitant]
     Active Substance: DEXRAZOXANE
     Route: 042
     Dates: start: 20240518, end: 20240518
  20. mecapegfilgrastim injection [Concomitant]
     Route: 058
     Dates: start: 20240610, end: 20240610
  21. polyene phosphatidylcholine capsule [Concomitant]
     Route: 048
     Dates: start: 20240619, end: 20240625
  22. LINEZOLID [Concomitant]
     Active Substance: LINEZOLID
     Route: 048
     Dates: start: 20240619, end: 20240625
  23. hydrotalcite chewable tablets [Concomitant]
     Route: 048
     Dates: start: 20240621, end: 20240625
  24. ENTECAVIR [Concomitant]
     Active Substance: ENTECAVIR
     Route: 048
     Dates: start: 20240615, end: 20240625
  25. ENTECAVIR [Concomitant]
     Active Substance: ENTECAVIR
     Route: 048
     Dates: start: 20240607, end: 20240610
  26. ENTECAVIR [Concomitant]
     Active Substance: ENTECAVIR
     Route: 048
     Dates: start: 20240515, end: 20240519
  27. metoprolol succinate extended-release tablet [Concomitant]
     Route: 048
     Dates: start: 20240615, end: 20240618
  28. metoprolol succinate extended-release tablet [Concomitant]
     Route: 048
     Dates: start: 20240608, end: 20240610
  29. metoprolol succinate extended-release tablet [Concomitant]
     Route: 048
     Dates: start: 20240515, end: 20240519
  30. Recombinant human thrombopoietin NEEDLE [Concomitant]
     Dosage: 1.5 OTHER
     Route: 058
     Dates: start: 20240617, end: 20240625
  31. herombopag olamine tablet [Concomitant]
     Route: 048
     Dates: start: 20240618, end: 20240625
  32. calcium gluconate tablet [Concomitant]
     Indication: Mineral supplementation
     Route: 048
     Dates: start: 20240619
  33. IBUPROFEN [Concomitant]
     Active Substance: IBUPROFEN
     Route: 048
     Dates: start: 20240615, end: 20240615
  34. PROMETHAZINE [Concomitant]
     Active Substance: PROMETHAZINE HYDROCHLORIDE
     Route: 030
     Dates: start: 20240616, end: 20240616
  35. DEXAMETHASONE SODIUM PHOSPHATE [Concomitant]
     Active Substance: DEXAMETHASONE SODIUM PHOSPHATE
     Route: 042
     Dates: start: 20240616, end: 20240616
  36. MEROPENEM [Concomitant]
     Active Substance: MEROPENEM
     Route: 042
     Dates: start: 20240617, end: 20240619
  37. Norepinephrine bitartrate Norepinephrine bitartrate [Concomitant]
     Route: 050
     Dates: start: 20240616, end: 20240619
  38. Acyclovir chewable tablets [Concomitant]
     Route: 048
     Dates: start: 20240518, end: 20240518

REACTIONS (8)
  - Leukopenia [Recovered/Resolved]
  - Neutrophil count decreased [Recovered/Resolved]
  - Platelet count decreased [Not Recovered/Not Resolved]
  - Alanine aminotransferase increased [Not Recovered/Not Resolved]
  - Aspartate aminotransferase increased [Recovered/Resolved]
  - Anaemia [Not Recovered/Not Resolved]
  - Cytokine release syndrome [Recovered/Resolved]
  - Pneumonia [Recovered/Resolved]

NARRATIVE: CASE EVENT DATE: 20240524
